FAERS Safety Report 15701832 (Version 1)
Quarter: 2018Q4

REPORT INFORMATION
  Report Type: Spontaneous
  Country: GB (occurrence: GB)
  Receive Date: 20181208
  Receipt Date: 20181208
  Transmission Date: 20190205
  Serious: Yes (Hospitalization)
  Sender: FDA-Public Use
  Company Number: GB-TEVA-2018-GB-983233

PATIENT
  Age: 89 Year
  Sex: Male
  Weight: 93.7 kg

DRUGS (7)
  1. QUININE SULFATE. [Concomitant]
     Active Substance: QUININE SULFATE
     Dosage: AT NIGHT
  2. OLANZAPINE. [Suspect]
     Active Substance: OLANZAPINE
     Indication: PROPHYLAXIS OF NAUSEA AND VOMITING
     Dosage: STATE DOSE
     Route: 048
     Dates: start: 20181030, end: 20181030
  3. TIMOLOL. [Concomitant]
     Active Substance: TIMOLOL
     Dosage: 1 GTT DAILY; NIGHT
     Route: 050
  4. VINORELBINE [Concomitant]
     Active Substance: VINORELBINE\VINORELBINE TARTRATE
     Route: 048
     Dates: start: 20181030
  5. FOLIC ACID. [Concomitant]
     Active Substance: FOLIC ACID
     Dosage: 5 MILLIGRAM DAILY;
  6. CISPLATIN. [Concomitant]
     Active Substance: CISPLATIN
     Indication: CHEMOTHERAPY
     Route: 042
     Dates: start: 20181030
  7. CARBOCISTEINE [Concomitant]
     Active Substance: CARBOCYSTEINE
     Dosage: 750 MILLIGRAM DAILY;

REACTIONS (7)
  - Gait disturbance [Recovered/Resolved]
  - Dysarthria [Recovered/Resolved]
  - Feeling abnormal [Recovered/Resolved]
  - Somnolence [Unknown]
  - Aggression [Recovered/Resolved]
  - Blood pressure decreased [Unknown]
  - Confusional state [Recovered/Resolved with Sequelae]

NARRATIVE: CASE EVENT DATE: 20181030
